FAERS Safety Report 13923750 (Version 2)
Quarter: 2017Q3

REPORT INFORMATION
  Report Type: Spontaneous
  Country: US (occurrence: US)
  Receive Date: 20170831
  Receipt Date: 20170911
  Transmission Date: 20171127
  Serious: No
  Sender: FDA-Public Use
  Company Number: US-PFIZER INC-2017375615

PATIENT
  Age: 56 Year
  Sex: Female

DRUGS (1)
  1. XELJANZ XR [Suspect]
     Active Substance: TOFACITINIB CITRATE
     Dosage: 11 MG, DAILY

REACTIONS (7)
  - Fatigue [Unknown]
  - Arthralgia [Unknown]
  - Peripheral swelling [Unknown]
  - Nail bed infection [Unknown]
  - Pain in extremity [Unknown]
  - Condition aggravated [Unknown]
  - Synovitis [Unknown]
